FAERS Safety Report 9630270 (Version 1)
Quarter: 2013Q4

REPORT INFORMATION
  Report Type: Spontaneous
  Country: AT (occurrence: AT)
  Receive Date: 20131017
  Receipt Date: 20131017
  Transmission Date: 20140711
  Serious: Yes (Life-Threatening, Hospitalization, Other)
  Sender: FDA-Public Use
  Company Number: AT-PFIZER INC-2013295530

PATIENT
  Age: 74 Year
  Sex: Male

DRUGS (9)
  1. LYRICA [Suspect]
     Indication: SCHIZOPHRENIA, CATATONIC TYPE
     Dosage: 100 MG, 1X/DAY
     Dates: start: 20130428, end: 20130503
  2. TRIMETHOPRIM [Suspect]
     Indication: SCHIZOPHRENIA, CATATONIC TYPE
     Dosage: 160 MG, 1X/DAY
     Dates: start: 20130426, end: 20130430
  3. TEMESTA [Concomitant]
     Dosage: 12 MG, 1X/DAY
  4. HALDOL [Concomitant]
     Dosage: 10 MG, 1X/DAY
  5. LUDIOMIL FOR INJECTION [Concomitant]
     Dosage: 75 UNK, UNK
     Dates: start: 20130427
  6. ENALAPRIL [Concomitant]
     Dosage: UNK
  7. LOVENOX [Concomitant]
     Dosage: 40 UNK, 1X/DAY
     Route: 058
     Dates: start: 20130419, end: 20130524
  8. MAPROTILINE [Concomitant]
     Dosage: 25 MG, 1X/DAY
     Dates: start: 20130424
  9. MAPROTILINE [Concomitant]
     Dosage: 75 MG, 1X/DAY
     Dates: start: 20130424

REACTIONS (3)
  - Off label use [Unknown]
  - Leukopenia [Recovered/Resolved]
  - Infection [Unknown]
